FAERS Safety Report 21813695 (Version 1)
Quarter: 2023Q1

REPORT INFORMATION
  Report Type: Spontaneous
  Country: AT (occurrence: AT)
  Receive Date: 20230104
  Receipt Date: 20230104
  Transmission Date: 20230417
  Serious: Yes (Death, Hospitalization, Other)
  Sender: FDA-Public Use
  Company Number: AT-SUN PHARMACEUTICAL INDUSTRIES LTD-2022R1-371487

PATIENT
  Age: 73 Year
  Sex: Female

DRUGS (4)
  1. AMPICILLIN SODIUM\SULBACTAM SODIUM [Suspect]
     Active Substance: AMPICILLIN SODIUM\SULBACTAM SODIUM
     Indication: Anti-infective therapy
     Dosage: 3 G TID
     Route: 065
  2. ACYCLOVIR [Suspect]
     Active Substance: ACYCLOVIR
     Indication: Anti-infective therapy
     Dosage: 600 MG
     Route: 065
  3. CEFTRIAXONE [Suspect]
     Active Substance: CEFTRIAXONE
     Indication: Anti-infective therapy
     Dosage: 4 G
     Route: 065
  4. DEXAMETHASONE [Suspect]
     Active Substance: DEXAMETHASONE
     Indication: Product used for unknown indication
     Dosage: 10 MG
     Route: 065

REACTIONS (6)
  - Pyrexia [Unknown]
  - Vasculitis [Unknown]
  - Condition aggravated [Unknown]
  - Therapeutic response decreased [Unknown]
  - Hypernatraemia [Unknown]
  - Death [Fatal]
